FAERS Safety Report 13417215 (Version 2)
Quarter: 2017Q2

REPORT INFORMATION
  Report Type: Spontaneous
  Country: JP (occurrence: JP)
  Receive Date: 20170407
  Receipt Date: 20170525
  Transmission Date: 20170830
  Serious: Yes (Other)
  Sender: FDA-Public Use
  Company Number: JP-BRISTOL-MYERS SQUIBB COMPANY-BMS-2017-029964

PATIENT
  Age: 47 Year
  Sex: Female
  Weight: 90.2 kg

DRUGS (10)
  1. PREDONINE [Concomitant]
     Active Substance: PREDNISOLONE
     Indication: STASIS DERMATITIS
     Dosage: 30 MG, TID
     Route: 048
     Dates: start: 20160822, end: 20160824
  2. MICARDIS [Concomitant]
     Active Substance: TELMISARTAN
     Indication: HYPERTENSION
     Dosage: 80 MG, QD
     Route: 048
     Dates: start: 20170306
  3. ELIQUIS [Suspect]
     Active Substance: APIXABAN
     Indication: EMBOLISM VENOUS
     Dosage: 5 MG, BID
     Route: 048
     Dates: start: 20160908
  4. NIFEDIPINE L [Concomitant]
     Indication: HYPERTENSION
     Dosage: 20 MG, BID
     Route: 048
     Dates: start: 20161108
  5. PULMICORT TURBUHALER [Concomitant]
     Active Substance: BUDESONIDE
     Indication: ASTHMA
     Dosage: 200 MG, UNK
     Route: 055
  6. PREDONINE [Concomitant]
     Active Substance: PREDNISOLONE
     Indication: PRODUCT USED FOR UNKNOWN INDICATION
     Dosage: 10 MG, BID
     Route: 048
     Dates: start: 20160908, end: 20161020
  7. PREDONINE [Concomitant]
     Active Substance: PREDNISOLONE
     Indication: PRODUCT USED FOR UNKNOWN INDICATION
     Dosage: 15 MG, TID
     Route: 048
     Dates: start: 20160825, end: 20160907
  8. SELARA [Concomitant]
     Active Substance: EPLERENONE
     Indication: HYPERTENSION
     Dosage: 50 MG, QD
     Route: 048
     Dates: start: 20161108, end: 20170409
  9. VALSARTAN MEIJI [Concomitant]
     Active Substance: VALSARTAN
     Indication: HYPERTENSION
     Dosage: 80 MG, QD
     Route: 048
     Dates: start: 20161108, end: 20170305
  10. ASPIRIN                            /00002701/ [Concomitant]
     Active Substance: ASPIRIN
     Indication: PRODUCT USED FOR UNKNOWN INDICATION
     Dosage: 0.5 G, BID
     Route: 048
     Dates: start: 20160822, end: 20161020

REACTIONS (2)
  - Deep vein thrombosis [Recovering/Resolving]
  - Varicose vein operation [Recovering/Resolving]

NARRATIVE: CASE EVENT DATE: 20161026
